FAERS Safety Report 19103687 (Version 3)
Quarter: 2021Q3

REPORT INFORMATION
  Report Type: Spontaneous
  Country: IN (occurrence: IN)
  Receive Date: 20210407
  Receipt Date: 20210910
  Transmission Date: 20211014
  Serious: Yes (Hospitalization, Other)
  Sender: FDA-Public Use
  Company Number: IN-PFIZER INC-2021333635

PATIENT
  Age: 83 Year
  Sex: Male

DRUGS (6)
  1. UROTONE [Concomitant]
     Dosage: 25 MG, 1X/DAY (25MG 1?0?0 (X30DAYS))
  2. PALBACE [Suspect]
     Active Substance: PALBOCICLIB
     Dosage: 125 MG, 1X/DAY
     Route: 048
     Dates: start: 20210304
  3. PALBACE [Suspect]
     Active Substance: PALBOCICLIB
     Indication: BREAST CANCER METASTATIC
     Dosage: 125 MG, 1X/DAY
     Route: 048
     Dates: start: 20210324, end: 202106
  4. PALBACE [Suspect]
     Active Substance: PALBOCICLIB
     Dosage: 100 MG (TAKE WITH FOOD ONCE A DAY FOR 21 DAYS FOLLOWED BY 7 DAYS GAP)
  5. PALBACE [Suspect]
     Active Substance: PALBOCICLIB
     Dosage: 75 MG
  6. AMLODIPINE [Concomitant]
     Active Substance: AMLODIPINE BESYLATE
     Dosage: 2.5 MG, 1X/DAY (2.5MG 1?0?0 (X30DAYS))

REACTIONS (7)
  - Second primary malignancy [Unknown]
  - Pneumonia [Unknown]
  - Blood count abnormal [Unknown]
  - SARS-CoV-2 test positive [Unknown]
  - Neoplasm progression [Unknown]
  - Platelet count abnormal [Unknown]
  - Soft tissue sarcoma [Unknown]
